FAERS Safety Report 5339231-5 (Version None)
Quarter: 2007Q2

REPORT INFORMATION
  Report Type: 
  Country: None (occurrence: None)
  Receive Date: 20070329
  Receipt Date: 20070201
  Transmission Date: 20071010
  Serious: Yes (Disabling)
  Sender: FDA-Public Use
  Company Number: A03200700931

PATIENT
  Age: 50 Year
  Sex: Female

DRUGS (2)
  1. AMBIEN [Suspect]
     Indication: INSOMNIA
     Dosage: 6.25 MG HS - ORAL
     Route: 048
     Dates: start: 20061101, end: 20061201
  2. SIMVASTATIN [Concomitant]

REACTIONS (4)
  - HEADACHE [None]
  - MYALGIA [None]
  - NAUSEA [None]
  - VOMITING [None]
